FAERS Safety Report 25015873 (Version 1)
Quarter: 2025Q1

REPORT INFORMATION
  Report Type: Spontaneous
  Country: US (occurrence: US)
  Receive Date: 20250227
  Receipt Date: 20250227
  Transmission Date: 20250408
  Serious: No
  Sender: AMNEAL
  Company Number: US-AMNEAL PHARMACEUTICALS-2024-AMRX-04614

PATIENT
  Sex: Male

DRUGS (2)
  1. CREXONT [Suspect]
     Active Substance: CARBIDOPA\LEVODOPA
     Indication: Parkinson^s disease
     Dosage: (70/280 MG) 02 CAPSULES AT 6 AM, 01 CAPSULE AT 1 PM, 02 CAPSULES AT 10 PM
     Route: 048
  2. CREXONT [Suspect]
     Active Substance: CARBIDOPA\LEVODOPA
     Dosage: (70/280 MG) 02 CAPSULES AT 6 AM, 01 CAPSULE AT 1 PM, 01 CAPSULE AT 10 PM
     Route: 048

REACTIONS (1)
  - Chromaturia [Recovered/Resolved]
